FAERS Safety Report 7586906-3 (Version None)
Quarter: 2011Q3

REPORT INFORMATION
  Report Type: 
  Country: None (occurrence: None)
  Receive Date: 20110701
  Receipt Date: 20110621
  Transmission Date: 20111222
  Serious: Yes (Hospitalization)
  Sender: FDA-Public Use
  Company Number: TW-MYLANLABS-2011S1013122

PATIENT
  Age: 52 Year
  Sex: Female

DRUGS (4)
  1. FLUOXETINE HCL [Suspect]
     Indication: DEPRESSION
     Route: 065
  2. SERTRALINE HYDROCHLORIDE [Suspect]
     Indication: DEPRESSION
     Route: 065
  3. ESCITALOPRAM [Suspect]
     Indication: DEPRESSION
     Route: 065
  4. DULOXETINE HYDROCHLORIDE [Suspect]
     Indication: DEPRESSION
     Route: 065

REACTIONS (2)
  - MULTIPLE SYSTEM ATROPHY [None]
  - PARKINSONISM [None]
